FAERS Safety Report 5693907-9 (Version None)
Quarter: 2008Q2

REPORT INFORMATION
  Report Type: 
  Country: None (occurrence: None)
  Receive Date: 20080403
  Receipt Date: 20080325
  Transmission Date: 20081010
  Serious: Yes (Hospitalization)
  Sender: FDA-Public Use
  Company Number: FR-PFIZER INC-2008027359

PATIENT
  Sex: Male

DRUGS (5)
  1. SOLU-MEDROL [Suspect]
     Indication: PREMEDICATION
     Route: 042
     Dates: start: 20071214, end: 20071214
  2. TAXOTERE [Suspect]
     Indication: LUNG NEOPLASM MALIGNANT
     Route: 042
     Dates: start: 20071214, end: 20071214
  3. KYTRIL [Suspect]
     Route: 042
     Dates: start: 20071214, end: 20071214
  4. POLARAMINE [Suspect]
     Route: 042
     Dates: start: 20071214, end: 20071214
  5. RANIPLEX [Suspect]
     Route: 042
     Dates: start: 20071214, end: 20071214

REACTIONS (1)
  - MYOCARDIAL INFARCTION [None]
